FAERS Safety Report 23356538 (Version 1)
Quarter: 2024Q1

REPORT INFORMATION
  Report Type: Spontaneous
  Country: CN (occurrence: CN)
  Receive Date: 20240102
  Receipt Date: 20240102
  Transmission Date: 20240409
  Serious: Yes (Other)
  Sender: FDA-Public Use
  Company Number: CN-BoehringerIngelheim-2023-BI-279948

PATIENT
  Age: 77 Year
  Sex: Female
  Weight: 48 kg

DRUGS (2)
  1. ALTEPLASE [Suspect]
     Active Substance: ALTEPLASE
     Indication: Thrombolysis
     Route: 042
     Dates: start: 20231221, end: 20231221
  2. ALTEPLASE [Suspect]
     Active Substance: ALTEPLASE
     Route: 042
     Dates: start: 20231221, end: 20231221

REACTIONS (3)
  - Gingival bleeding [Recovered/Resolved]
  - Haemoglobin decreased [Recovering/Resolving]
  - Tongue haemorrhage [Recovering/Resolving]

NARRATIVE: CASE EVENT DATE: 20231221
